FAERS Safety Report 12060032 (Version 2)
Quarter: 2016Q1

REPORT INFORMATION
  Report Type: Spontaneous
  Country: DE (occurrence: DE)
  Receive Date: 20160210
  Receipt Date: 20160223
  Transmission Date: 20160526
  Serious: Yes (Hospitalization, Other)
  Sender: FDA-Public Use
  Company Number: DE-AMGEN-DEUSP2016014778

PATIENT
  Age: 66 Year
  Sex: Male
  Weight: 80 kg

DRUGS (5)
  1. LODOTRA [Interacting]
     Active Substance: PREDNISONE
     Indication: PRODUCT USED FOR UNKNOWN INDICATION
     Dosage: 5 MG, QD
     Route: 065
     Dates: start: 20110128, end: 201601
  2. ENBREL [Suspect]
     Active Substance: ETANERCEPT
     Indication: PRODUCT USED FOR UNKNOWN INDICATION
     Dosage: 50 MG, WEEKLY
     Route: 065
     Dates: start: 20110502
  3. MAGNESIUM [Concomitant]
     Active Substance: MAGNESIUM
     Dosage: 600 MG, DAILY
  4. LODOTRA [Interacting]
     Active Substance: PREDNISONE
     Dosage: 2 MG, QD
     Route: 065
     Dates: start: 20110128, end: 201601
  5. OMEPRAZOL                          /00661201/ [Concomitant]
     Active Substance: OMEPRAZOLE
     Dosage: 20 MG, DAILY

REACTIONS (13)
  - Myalgia [Not Recovered/Not Resolved]
  - Sleep apnoea syndrome [Unknown]
  - Spondylolisthesis [Unknown]
  - Pain in extremity [Unknown]
  - Arthralgia [Unknown]
  - Muscle spasms [Unknown]
  - Muscular weakness [Not Recovered/Not Resolved]
  - Radiculopathy [Unknown]
  - Tendon disorder [Not Recovered/Not Resolved]
  - Drug interaction [Not Recovered/Not Resolved]
  - Seizure [Not Recovered/Not Resolved]
  - Restless legs syndrome [Unknown]
  - Balance disorder [Not Recovered/Not Resolved]

NARRATIVE: CASE EVENT DATE: 2012
